FAERS Safety Report 17934577 (Version 1)
Quarter: 2020Q2

REPORT INFORMATION
  Report Type: Spontaneous
  Country: US (occurrence: US)
  Receive Date: 20200623
  Receipt Date: 20200623
  Transmission Date: 20200714
  Serious: No
  Sender: FDA-Public Use
  Company Number: None

PATIENT
  Sex: Male

DRUGS (9)
  1. ASPIRIN LOW TAB 81 MG EC [Concomitant]
     Dates: start: 20200622
  2. LASIX TAB 40MG [Concomitant]
     Dates: start: 20200622
  3. XELJANZ XR [Suspect]
     Active Substance: TOFACITINIB CITRATE
     Indication: RHEUMATOID ARTHRITIS
     Route: 048
     Dates: start: 20191105
  4. ATORVASTATIN TAB 40MG [Concomitant]
     Dates: start: 20200622
  5. FORMOTEROL POW FUMARATE [Concomitant]
     Dates: start: 20200622
  6. POT CHLORIDE TAB 10MEQ ER [Concomitant]
     Dates: start: 20200622
  7. METOPROLOL TAB 25MG ER [Concomitant]
     Dates: start: 20200622
  8. BRILINTA TAB 90MG [Concomitant]
  9. VITAMIN D CAP 50000 UNT [Concomitant]
     Dates: start: 20200622

REACTIONS (1)
  - Stent placement [None]
